FAERS Safety Report 7982238-X (Version None)
Quarter: 2011Q4

REPORT INFORMATION
  Report Type: 
  Country: None (occurrence: None)
  Receive Date: 20111215
  Receipt Date: 20111215
  Transmission Date: 20120403
  Serious: Yes (Other)
  Sender: FDA-Public Use
  Company Number: None

PATIENT
  Sex: Female

DRUGS (1)
  1. VELTIN [Suspect]
     Indication: ACNE
     Dosage: APPLY SMALL AMOUNT
     Route: 061
     Dates: start: 20111202, end: 20111213

REACTIONS (2)
  - URTICARIA [None]
  - ADVERSE REACTION [None]
